FAERS Safety Report 18995274 (Version 1)
Quarter: 2021Q1

REPORT INFORMATION
  Report Type: Spontaneous
  Country: IT (occurrence: IT)
  Receive Date: 20210311
  Receipt Date: 20210311
  Transmission Date: 20210420
  Serious: Yes (Other)
  Sender: FDA-Public Use
  Company Number: IT-AUROBINDO-AUR-APL-2021-009963

PATIENT
  Age: 63 Year
  Sex: Female

DRUGS (14)
  1. CARBOPLATIN. [Suspect]
     Active Substance: CARBOPLATIN
     Dosage: UNK
     Route: 065
     Dates: start: 201611
  2. TRABECTEDIN [Concomitant]
     Active Substance: TRABECTEDIN
     Dosage: 4 CYCLES
     Route: 065
     Dates: start: 201411
  3. PEGYLATED LIPOSOMAL DOXORUBICIN [Concomitant]
     Active Substance: DOXORUBICIN
     Indication: OVARIAN CANCER
     Dosage: 4 CYCLES
     Route: 065
     Dates: start: 201405, end: 201407
  4. GEMCITABINE. [Concomitant]
     Active Substance: GEMCITABINE
     Indication: OVARIAN CANCER
     Dosage: UNK
     Route: 065
     Dates: start: 201508
  5. CARBOPLATIN. [Suspect]
     Active Substance: CARBOPLATIN
     Indication: OVARIAN CANCER
     Dosage: UNK
     Route: 065
     Dates: start: 201208
  6. PACLITAXEL. [Suspect]
     Active Substance: PACLITAXEL
     Indication: OVARIAN CANCER
     Dosage: UNK
     Route: 065
     Dates: start: 201208
  7. PACLITAXEL. [Suspect]
     Active Substance: PACLITAXEL
     Dosage: UNK UNK, EVERY WEEK
     Route: 065
     Dates: start: 201706
  8. GEMCITABINE. [Concomitant]
     Active Substance: GEMCITABINE
     Dosage: UNK
     Route: 065
     Dates: start: 201611
  9. TRABECTEDIN [Concomitant]
     Active Substance: TRABECTEDIN
     Indication: OVARIAN CANCER
     Dosage: 4 CYCLES
     Route: 065
     Dates: start: 201405, end: 201407
  10. BEVACIZUMAB. [Suspect]
     Active Substance: BEVACIZUMAB
     Indication: OVARIAN CANCER
     Dosage: UNK
     Route: 065
     Dates: start: 201208
  11. OLAPARIB. [Concomitant]
     Active Substance: OLAPARIB
     Indication: OVARIAN CANCER
     Dosage: UNK
     Route: 065
     Dates: start: 201611
  12. BEVACIZUMAB. [Suspect]
     Active Substance: BEVACIZUMAB
     Dosage: UNK
     Route: 065
     Dates: start: 201303
  13. CARBOPLATIN. [Suspect]
     Active Substance: CARBOPLATIN
     Dosage: UNK
     Route: 065
     Dates: start: 201508
  14. PEGYLATED LIPOSOMAL DOXORUBICIN [Concomitant]
     Active Substance: DOXORUBICIN
     Dosage: 4 CYCLES
     Route: 065
     Dates: start: 201411

REACTIONS (4)
  - Neuropathy peripheral [Not Recovered/Not Resolved]
  - Alopecia [Not Recovered/Not Resolved]
  - Pneumonia [Not Recovered/Not Resolved]
  - Asthenia [Not Recovered/Not Resolved]
